FAERS Safety Report 9184468 (Version 1)
Quarter: 2012Q4

REPORT INFORMATION
  Report Type: 
  Country: NZ (occurrence: NZ)
  Receive Date: 20121101
  Receipt Date: 20121101
  Transmission Date: 20130627
  Serious: Yes (Congenital Anomaly, Other)
  Sender: FDA-Public Use
  Company Number: NZ-PFIZER INC-2012271133

PATIENT

DRUGS (1)
  1. VARENICLINE TARTRATE [Suspect]
     Dosage: UNK
     Route: 064

REACTIONS (2)
  - Maternal exposure timing unspecified [Unknown]
  - Ankyloglossia congenital [Unknown]
